FAERS Safety Report 12309432 (Version 2)
Quarter: 2016Q2

REPORT INFORMATION
  Report Type: Spontaneous
  Country: US (occurrence: US)
  Receive Date: 20160427
  Receipt Date: 20160531
  Transmission Date: 20160815
  Serious: No
  Sender: FDA-Public Use
  Company Number: US-PFIZER INC-2015442313

PATIENT
  Age: 50 Year
  Sex: Female
  Weight: 93 kg

DRUGS (1)
  1. LYRICA [Suspect]
     Active Substance: PREGABALIN
     Dosage: 300 MG, 3X/DAY

REACTIONS (15)
  - Weight increased [Not Recovered/Not Resolved]
  - Restlessness [Unknown]
  - Arthralgia [Not Recovered/Not Resolved]
  - Musculoskeletal pain [Not Recovered/Not Resolved]
  - Fatigue [Unknown]
  - Headache [Unknown]
  - Gait disturbance [Unknown]
  - Oedema peripheral [Unknown]
  - Condition aggravated [Not Recovered/Not Resolved]
  - Anger [Unknown]
  - Overdose [Unknown]
  - General physical health deterioration [Unknown]
  - Neck pain [Not Recovered/Not Resolved]
  - Myalgia [Unknown]
  - Anxiety [Unknown]
